FAERS Safety Report 10643184 (Version 1)
Quarter: 2014Q4

REPORT INFORMATION
  Report Type: Spontaneous
  Country: US (occurrence: None)
  Receive Date: 20141121
  Receipt Date: 20141121
  Transmission Date: 20150529
  Serious: No
  Sender: FDA-Public Use
  Company Number: 163-10004-14092439

PATIENT
  Age: 54 Year
  Sex: Female
  Weight: 79.38 kg

DRUGS (3)
  1. HYDROCHLOROTHIAZIDE(HYDROCHLOROTHIAZIDE) [Concomitant]
  2. ATENOLOL (ATENOLOL) [Concomitant]
     Active Substance: ATENOLOL
  3. OTEZLA [Suspect]
     Active Substance: APREMILAST
     Indication: PSORIATIC ARTHROPATHY
     Route: 048
     Dates: start: 20140905

REACTIONS (4)
  - Nausea [None]
  - Anxiety [None]
  - Pain in extremity [None]
  - Crying [None]

NARRATIVE: CASE EVENT DATE: 20140905
